FAERS Safety Report 10149731 (Version 1)
Quarter: 2014Q2

REPORT INFORMATION
  Report Type: Spontaneous
  Country: HK (occurrence: HK)
  Receive Date: 20140502
  Receipt Date: 20140502
  Transmission Date: 20141212
  Serious: Yes (Death, Hospitalization)
  Sender: FDA-Public Use
  Company Number: PHHY2014HK052332

PATIENT
  Age: 41 Year
  Sex: Male

DRUGS (1)
  1. LAMISIL [Suspect]
     Indication: ONYCHOMYCOSIS
     Dosage: UNK UKN, UNK
     Route: 048
     Dates: end: 201403

REACTIONS (8)
  - Brain oedema [Fatal]
  - Hepatic failure [Fatal]
  - Yellow skin [Fatal]
  - Malaise [Fatal]
  - Hepatic enzyme increased [Fatal]
  - Fatigue [Fatal]
  - Decreased appetite [Fatal]
  - Coma [Unknown]
